FAERS Safety Report 4539291-5 (Version None)
Quarter: 2004Q4

REPORT INFORMATION
  Report Type: 
  Country: None (occurrence: None)
  Receive Date: 20041222
  Receipt Date: 20041210
  Transmission Date: 20050328
  Serious: Yes (Disabling, Other)
  Sender: FDA-Public Use
  Company Number: 2004110572

PATIENT
  Sex: Male
  Weight: 91.173 kg

DRUGS (3)
  1. ATORVASTATIN (ATORVASTATIN) [Suspect]
     Indication: ILL-DEFINED DISORDER
  2. SIMVASTATIN [Suspect]
     Indication: ILL-DEFINED DISORDER
  3. METFORMIN HCL [Suspect]
     Indication: ILL-DEFINED DISORDER

REACTIONS (2)
  - ABASIA [None]
  - ACTIVITIES OF DAILY LIVING IMPAIRED [None]
